FAERS Safety Report 13051548 (Version 1)
Quarter: 2016Q4

REPORT INFORMATION
  Report Type: Spontaneous
  Country: US (occurrence: US)
  Receive Date: 20161221
  Receipt Date: 20161221
  Transmission Date: 20170207
  Serious: No
  Sender: FDA-Public Use
  Company Number: US-AMGEN-USASP2016174149

PATIENT
  Age: 62 Year
  Sex: Male

DRUGS (6)
  1. CAPSAICIN. [Concomitant]
     Active Substance: CAPSAICIN
     Indication: PSORIASIS
  2. CARVEDILOL. [Concomitant]
     Active Substance: CARVEDILOL
     Indication: HYPERTENSION
  3. ENBREL [Suspect]
     Active Substance: ETANERCEPT
     Indication: PSORIASIS
     Dosage: 50 MG, UNK
     Route: 065
  4. TRAMADOL. [Concomitant]
     Active Substance: TRAMADOL
     Indication: PAIN
  5. AMLODIPINE [Concomitant]
     Active Substance: AMLODIPINE BESYLATE
     Indication: HYPERTENSION
  6. FLUOCINONIDE. [Concomitant]
     Active Substance: FLUOCINONIDE

REACTIONS (5)
  - Drug dose omission [Unknown]
  - Nasopharyngitis [Unknown]
  - Psoriasis [Unknown]
  - Sleep disorder [Unknown]
  - Rhinorrhoea [Unknown]
